FAERS Safety Report 25263712 (Version 1)
Quarter: 2025Q2

REPORT INFORMATION
  Report Type: Spontaneous
  Country: ES (occurrence: ES)
  Receive Date: 20250502
  Receipt Date: 20250502
  Transmission Date: 20250716
  Serious: Yes (Other)
  Sender: CHEPLAPHARM
  Company Number: None

PATIENT
  Age: 70 Year
  Sex: Female

DRUGS (9)
  1. CLONAZEPAM [Suspect]
     Active Substance: CLONAZEPAM
     Indication: Tremor
     Route: 002
     Dates: start: 20250306, end: 20250319
  2. PAROXETINE [Suspect]
     Active Substance: PAROXETINE
     Indication: Depression
     Dosage: EFG FILM-COATED TABLETS, 28 TABLETS?DAILY DOSE: 20 MILLIGRAM
     Route: 048
     Dates: start: 20120504
  3. Metformin Cinfa [Concomitant]
     Dosage: FILM-COATED TABLETS, 50 TABLETS?DAILY DOSE: 1700 MILLIGRAM
     Route: 048
     Dates: start: 20241218
  4. Losartan/hydrochlorothiazide cinfa [Concomitant]
     Dosage: 28 TABLETS?DAILY DOSE: 1 DOSAGE FORM
     Route: 048
     Dates: start: 20170322
  5. FLUVASTATIN [Concomitant]
     Active Substance: FLUVASTATIN SODIUM
     Dosage: 28 CAPSULES?DAILY DOSE: 20 MILLIGRAM
     Route: 048
     Dates: start: 20170405
  6. FENOFIBRATE [Concomitant]
     Active Substance: FENOFIBRATE
     Dosage: 30 CAPSULES?DAILY DOSE: 160 MILLIGRAM
     Route: 048
     Dates: start: 20210701
  7. ACETAMINOPHEN [Concomitant]
     Active Substance: ACETAMINOPHEN
     Dosage: 40 TABLETS?DAILY DOSE: 650 MILLIGRAM
     Route: 048
     Dates: start: 20150928
  8. MYSOLINE [Concomitant]
     Active Substance: PRIMIDONE
     Dosage: 1.5 TABLETS OF 250 MG AT BEDTIME?DAILY DOSE: 375 MILLIGRAM
     Route: 048
     Dates: start: 20220105
  9. Sinmet [Concomitant]
     Dosage: 100 TABLETS?DAILY DOSE: 6 DOSAGE FORM
     Route: 048
     Dates: start: 20221024

REACTIONS (5)
  - Mental impairment [Recovering/Resolving]
  - Gait disturbance [Recovering/Resolving]
  - Bradykinesia [Unknown]
  - Off label use [Recovered/Resolved]
  - Off label use [Recovered/Resolved]

NARRATIVE: CASE EVENT DATE: 20250306
